FAERS Safety Report 16214198 (Version 1)
Quarter: 2019Q2

REPORT INFORMATION
  Report Type: Report from Study
  Country: JP (occurrence: JP)
  Receive Date: 20190418
  Receipt Date: 20190418
  Transmission Date: 20190711
  Serious: Yes (Death, Life-Threatening, Hospitalization)
  Sender: FDA-Public Use
  Company Number: JP-SHIONOGI, INC-2019000373

PATIENT
  Sex: Male

DRUGS (70)
  1. HYDROMORPHONE HYDROCHLORIDE. [Suspect]
     Active Substance: HYDROMORPHONE HYDROCHLORIDE
     Dosage: UNK
     Route: 048
     Dates: start: 20180928, end: 20190118
  2. WARFARIN [Suspect]
     Active Substance: WARFARIN
     Dosage: UNK
     Route: 048
     Dates: start: 20180925, end: 20181014
  3. SODIUM CHLORIDE. [Concomitant]
     Active Substance: SODIUM CHLORIDE
     Dosage: UNK
     Route: 042
     Dates: start: 20170607, end: 20170607
  4. FLUNITRAZEPAM [Concomitant]
     Active Substance: FLUNITRAZEPAM
     Dosage: UNK
     Route: 042
     Dates: start: 20170607, end: 20170607
  5. LIXIANA [Concomitant]
     Active Substance: EDOXABAN TOSYLATE
     Dosage: UNK
     Route: 048
     Dates: start: 20190120, end: 20190121
  6. LINACLOTIDE [Concomitant]
     Active Substance: LINACLOTIDE
     Dosage: UNK
     Route: 048
     Dates: end: 20190121
  7. OLMESARTAN MEDOXOMIL. [Concomitant]
     Active Substance: OLMESARTAN MEDOXOMIL
     Dosage: UNK
     Route: 048
     Dates: end: 20190121
  8. HEPARINOID [Concomitant]
     Active Substance: CHONDROITIN SULFATE (BOVINE)
     Dosage: UNK
     Route: 050
     Dates: start: 20180924, end: 20180924
  9. CEFCAPENE PIVOXIL HYDROCHLORIDE [Concomitant]
     Active Substance: CEFCAPENE PIVOXIL HYDROCHLORIDE
     Dosage: UNK
     Route: 048
     Dates: start: 20180901, end: 20180903
  10. BICALUTAMIDE. [Concomitant]
     Active Substance: BICALUTAMIDE
     Dosage: UNK
     Route: 048
  11. EPLERENONE. [Concomitant]
     Active Substance: EPLERENONE
     Dosage: UNK
     Route: 048
     Dates: end: 20180829
  12. CLOSTRIDIUM BUTYRICUM [Concomitant]
     Active Substance: CLOSTRIDIUM BUTYRICUM SPORES STRAIN M-55
     Dosage: UNK
     Route: 048
     Dates: end: 20190121
  13. REPAGLINIDE. [Concomitant]
     Active Substance: REPAGLINIDE
     Dosage: UNK
     Route: 048
     Dates: end: 20180607
  14. WARFARIN [Suspect]
     Active Substance: WARFARIN
     Dosage: UNK
     Route: 048
     Dates: start: 20180920, end: 20180924
  15. ASPIRIN                            /00002701/ [Suspect]
     Active Substance: ASPIRIN
     Dosage: UNK
     Route: 048
     Dates: start: 20180831, end: 20190121
  16. DEXAMETHASONE PROPIONATE [Concomitant]
     Active Substance: DEXAMETHASONE DIPROPIONATE
     Dosage: UNK
     Route: 050
     Dates: start: 20180726, end: 20180809
  17. REBAMIPIDE [Concomitant]
     Active Substance: REBAMIPIDE
     Dosage: UNK
     Route: 048
     Dates: start: 20180826, end: 20180826
  18. HEPARINOID [Concomitant]
     Active Substance: CHONDROITIN SULFATE (BOVINE)
     Dosage: UNK
     Route: 050
     Dates: start: 20181026, end: 20181026
  19. PREDNISOLONE. [Concomitant]
     Active Substance: PREDNISOLONE
     Dosage: UNK
     Route: 048
     Dates: end: 20190121
  20. ZINC OXIDE. [Concomitant]
     Active Substance: ZINC OXIDE
     Dosage: UNK
     Route: 050
  21. BIO-THREE [Concomitant]
     Active Substance: HERBALS
     Dosage: UNK
     Route: 048
     Dates: end: 20190121
  22. INSULIN HUMAN [Concomitant]
     Active Substance: INSULIN HUMAN
     Dosage: UNK
     Route: 058
     Dates: start: 20180825, end: 20180825
  23. RANITIDINE. [Concomitant]
     Active Substance: RANITIDINE
     Dosage: UNK
     Route: 042
     Dates: start: 20181214, end: 20181214
  24. BENIDIPINE HYDROCHLORIDE [Concomitant]
     Active Substance: BENIDIPINE HYDROCHLORIDE
     Dosage: UNK
     Route: 048
     Dates: end: 20190121
  25. WARFARIN [Suspect]
     Active Substance: WARFARIN
     Dosage: UNK
     Route: 048
     Dates: start: 20181015, end: 20190118
  26. TRAMADOL HYDROCHLORIDE. [Suspect]
     Active Substance: TRAMADOL HYDROCHLORIDE
     Dosage: UNK
     Route: 048
     Dates: start: 20180914, end: 20180928
  27. GLUCOSE [Concomitant]
     Active Substance: DEXTROSE
     Dosage: UNK
     Route: 048
     Dates: start: 20181213, end: 20181213
  28. LYXUMIA [Concomitant]
     Active Substance: LIXISENATIDE
     Dosage: UNK
     Route: 058
     Dates: end: 20180626
  29. SODIUM PICOSULFATE [Concomitant]
     Active Substance: SODIUM PICOSULFATE
     Dosage: UNK
     Route: 048
     Dates: start: 20180530, end: 20180530
  30. TRESIBA [Concomitant]
     Active Substance: INSULIN DEGLUDEC
     Dosage: UNK
     Route: 058
     Dates: end: 20190122
  31. SYMPROIC [Suspect]
     Active Substance: NALDEMEDINE
     Dosage: UNK
     Route: 048
     Dates: start: 20180928, end: 20190121
  32. HUMALOG [Concomitant]
     Active Substance: INSULIN LISPRO
     Dosage: UNK
     Route: 058
     Dates: start: 20180531, end: 20190122
  33. SODIUM CHLORIDE. [Concomitant]
     Active Substance: SODIUM CHLORIDE
     Dosage: UNK
     Route: 042
     Dates: start: 20181017, end: 20181019
  34. SENNOSIDE                          /00571901/ [Concomitant]
     Active Substance: SENNOSIDES A AND B
     Dosage: UNK
     Route: 048
     Dates: end: 20181012
  35. OLMESARTAN MEDOXOMIL. [Concomitant]
     Active Substance: OLMESARTAN MEDOXOMIL
     Dosage: UNK
     Route: 048
  36. FEBUXOSTAT. [Concomitant]
     Active Substance: FEBUXOSTAT
     Dosage: UNK
     Route: 048
     Dates: end: 20190121
  37. PARACETA [Concomitant]
     Dosage: UNK
     Route: 048
     Dates: end: 20190118
  38. TEPRENONE [Concomitant]
     Active Substance: TEPRENONE
     Dosage: UNK
     Route: 048
     Dates: end: 20190121
  39. NICORANDIL [Concomitant]
     Active Substance: NICORANDIL
     Dosage: UNK
     Route: 048
     Dates: end: 20190121
  40. PITAVASTATIN CALCIUM OD [Concomitant]
     Dosage: UNK
     Route: 048
     Dates: end: 20190121
  41. DEGARELIX ACETATE [Suspect]
     Active Substance: DEGARELIX ACETATE
     Dosage: UNK
     Route: 058
     Dates: start: 20180726, end: 20180802
  42. PRASUGREL HYDROCHLORIDE [Suspect]
     Active Substance: PRASUGREL HYDROCHLORIDE
     Indication: ANGINA PECTORIS
     Dosage: 3.75 MG, QD
     Route: 048
     Dates: start: 20180904, end: 20180904
  43. HEPARINOID [Concomitant]
     Active Substance: CHONDROITIN SULFATE (BOVINE)
     Dosage: UNK
     Route: 050
     Dates: start: 20180914, end: 20180914
  44. HEPARINOID [Concomitant]
     Active Substance: CHONDROITIN SULFATE (BOVINE)
     Dosage: UNK
     Route: 065
     Dates: start: 20180905
  45. HEPARINOID [Concomitant]
     Active Substance: CHONDROITIN SULFATE (BOVINE)
     Dosage: 5000 IU, QD
     Route: 065
  46. INSULIN HUMAN [Concomitant]
     Active Substance: INSULIN HUMAN
     Dosage: UNK
     Route: 058
     Dates: start: 20180829, end: 20180830
  47. ESOMEPRAZOLE MAGNESIUM. [Concomitant]
     Active Substance: ESOMEPRAZOLE MAGNESIUM
     Dosage: UNK
     Route: 065
  48. FLUMAZENIL. [Concomitant]
     Active Substance: FLUMAZENIL
     Dosage: UNK
     Route: 042
     Dates: start: 20170607, end: 20170607
  49. ISOSORBIDE DINITRATE. [Concomitant]
     Active Substance: ISOSORBIDE DINITRATE
     Dosage: UNK
     Route: 050
     Dates: start: 20190122, end: 20190122
  50. WARFARIN [Suspect]
     Active Substance: WARFARIN
     Dosage: UNK
     Route: 048
     Dates: start: 20180905
  51. CABAZITAXEL ACETONE [Suspect]
     Active Substance: CABAZITAXEL
     Dosage: UNK
     Route: 065
     Dates: start: 20181214
  52. HYDROMORPHONE HYDROCHLORIDE. [Suspect]
     Active Substance: HYDROMORPHONE HYDROCHLORIDE
     Dosage: UNK
     Route: 048
     Dates: start: 20180926, end: 20190118
  53. BISOPROLOL FUMARATE. [Concomitant]
     Active Substance: BISOPROLOL FUMARATE
     Dosage: UNK
     Route: 048
     Dates: end: 20190121
  54. GLUCOSE [Concomitant]
     Active Substance: DEXTROSE
     Dosage: UNK
     Route: 048
     Dates: start: 20180607, end: 20180626
  55. SODIUM CHLORIDE. [Concomitant]
     Active Substance: SODIUM CHLORIDE
     Dosage: UNK
     Route: 042
     Dates: start: 20170603, end: 20170609
  56. SODIUM CHLORIDE. [Concomitant]
     Active Substance: SODIUM CHLORIDE
     Dosage: UNK
     Route: 042
     Dates: start: 20181118, end: 20181120
  57. SODIUM PICOSULFATE [Concomitant]
     Active Substance: SODIUM PICOSULFATE
     Dosage: UNK
     Route: 048
  58. SODIUM PICOSULFATE [Concomitant]
     Active Substance: SODIUM PICOSULFATE
     Dosage: UNK
     Route: 048
     Dates: start: 20180827, end: 20180827
  59. INSULIN HUMAN [Concomitant]
     Active Substance: INSULIN HUMAN
     Dosage: UNK
     Route: 058
     Dates: start: 20180905, end: 20180905
  60. GOSERELIN ACETATE [Concomitant]
     Active Substance: GOSERELIN ACETATE
     Dosage: UNK
     Route: 058
     Dates: end: 20180507
  61. FILGRASTIM [Concomitant]
     Active Substance: FILGRASTIM
     Dosage: UNK
     Route: 058
     Dates: start: 20180705, end: 20180708
  62. DEXAMETHASONE. [Concomitant]
     Active Substance: DEXAMETHASONE
     Dosage: UNK
     Route: 050
     Dates: start: 20180128, end: 20190122
  63. CLOSTRIDIUM BUTYRICUM [Concomitant]
     Active Substance: CLOSTRIDIUM BUTYRICUM SPORES STRAIN M-55
     Dosage: UNK
     Route: 048
     Dates: start: 20180427, end: 20180527
  64. BEPOTASTINE BESILATE [Concomitant]
     Active Substance: BEPOTASTINE BESILATE
     Dosage: UNK
     Route: 048
     Dates: start: 20180726, end: 20190121
  65. XTANDI [Suspect]
     Active Substance: ENZALUTAMIDE
     Dosage: UNK
     Route: 048
     Dates: start: 20180809
  66. LYRICA [Concomitant]
     Active Substance: PREGABALIN
     Dosage: UNK
     Route: 048
     Dates: end: 20190118
  67. DIAZEPAM. [Concomitant]
     Active Substance: DIAZEPAM
     Dosage: UNK
     Route: 048
     Dates: start: 20170605, end: 20170605
  68. DIPHENHYDRAMINE HYDROCHLORIDE. [Concomitant]
     Active Substance: DIPHENHYDRAMINE HYDROCHLORIDE
     Dosage: UNK
     Route: 048
     Dates: start: 20170605, end: 20170605
  69. CEFDINIR. [Concomitant]
     Active Substance: CEFDINIR
     Dosage: UNK
     Route: 048
     Dates: start: 20180823, end: 20180825
  70. CHLORPHENIRAMINE MALEATE. [Concomitant]
     Active Substance: CHLORPHENIRAMINE MALEATE
     Dosage: UNK
     Route: 042
     Dates: start: 20181214, end: 20181214

REACTIONS (30)
  - Dehydration [Recovering/Resolving]
  - Anaemia [Fatal]
  - Myocardial ischaemia [Fatal]
  - Chest pain [Not Recovered/Not Resolved]
  - Epistaxis [Recovering/Resolving]
  - Nausea [Recovering/Resolving]
  - Metastases to liver [Recovering/Resolving]
  - Skin abrasion [Recovering/Resolving]
  - Haemoglobin decreased [Recovering/Resolving]
  - Urinary bladder haemorrhage [Recovering/Resolving]
  - Renal impairment [Not Recovered/Not Resolved]
  - Stomatitis [Recovering/Resolving]
  - Cardiac failure congestive [Fatal]
  - Back pain [Recovering/Resolving]
  - Depressed level of consciousness [Not Recovered/Not Resolved]
  - Erythema [Recovering/Resolving]
  - Chest pain [Recovering/Resolving]
  - Dyspnoea [Not Recovered/Not Resolved]
  - Oxygen saturation decreased [Not Recovered/Not Resolved]
  - International normalised ratio abnormal [Not Recovered/Not Resolved]
  - Constipation [Recovering/Resolving]
  - Diarrhoea [Recovering/Resolving]
  - Radiation skin injury [Recovering/Resolving]
  - Pruritus [Recovering/Resolving]
  - Platelet count decreased [Recovering/Resolving]
  - Haemoptysis [Not Recovered/Not Resolved]
  - Oxygen saturation decreased [Recovering/Resolving]
  - Occult blood positive [Not Recovered/Not Resolved]
  - Cystitis [Recovering/Resolving]
  - Diarrhoea [Recovering/Resolving]

NARRATIVE: CASE EVENT DATE: 20180928
